FAERS Safety Report 19631526 (Version 1)
Quarter: 2021Q3

REPORT INFORMATION
  Report Type: Spontaneous
  Country: DE (occurrence: DE)
  Receive Date: 20210729
  Receipt Date: 20210729
  Transmission Date: 20211014
  Serious: Yes (Life-Threatening, Hospitalization, Other)
  Sender: FDA-Public Use
  Company Number: DE-ASTRAZENECA-2021A638899

PATIENT
  Age: 47 Year
  Sex: Female
  Weight: 60 kg

DRUGS (6)
  1. GLIMEPIRID [Concomitant]
     Active Substance: GLIMEPIRIDE
  2. METFORMIN [Concomitant]
     Active Substance: METFORMIN HYDROCHLORIDE
  3. L?THYROXIN [Concomitant]
     Active Substance: LEVOTHYROXINE SODIUM
  4. FORXIGA [Suspect]
     Active Substance: DAPAGLIFLOZIN
     Indication: DIABETES MELLITUS
     Route: 048
     Dates: start: 20210601, end: 20210603
  5. FORXIGA [Suspect]
     Active Substance: DAPAGLIFLOZIN
     Indication: DIABETES MELLITUS
     Route: 048
     Dates: start: 20210503, end: 20210530
  6. JANUVIA [Concomitant]
     Active Substance: SITAGLIPTIN PHOSPHATE

REACTIONS (5)
  - Tachycardia [Recovered/Resolved]
  - Restlessness [Recovered/Resolved]
  - Tachypnoea [Recovered/Resolved]
  - Euglycaemic diabetic ketoacidosis [Recovered/Resolved]
  - Thirst [Recovered/Resolved]

NARRATIVE: CASE EVENT DATE: 20210602
